FAERS Safety Report 14621221 (Version 1)
Quarter: 2018Q1

REPORT INFORMATION
  Report Type: Spontaneous
  Country: US (occurrence: US)
  Receive Date: 20180310
  Receipt Date: 20180310
  Transmission Date: 20180509
  Serious: No
  Sender: FDA-Public Use
  Company Number: PHEH2018US009343

PATIENT
  Sex: Male

DRUGS (1)
  1. AMANTADINE SANDOZ [Suspect]
     Active Substance: AMANTADINE
     Indication: DYSKINESIA
     Route: 065

REACTIONS (1)
  - Rapid eye movement sleep behaviour disorder [Not Recovered/Not Resolved]
